FAERS Safety Report 25226319 (Version 1)
Quarter: 2025Q2

REPORT INFORMATION
  Report Type: Spontaneous
  Country: US (occurrence: US)
  Receive Date: 20250422
  Receipt Date: 20250422
  Transmission Date: 20250716
  Serious: Yes (Other)
  Sender: PFIZER
  Company Number: US-PFIZER INC-HQWYE552124FEB05

PATIENT
  Age: 52 Year
  Sex: Male

DRUGS (21)
  1. VANCOMYCIN HYDROCHLORIDE [Suspect]
     Active Substance: VANCOMYCIN HYDROCHLORIDE
     Indication: Peritonitis
  2. VANCOMYCIN HYDROCHLORIDE [Suspect]
     Active Substance: VANCOMYCIN HYDROCHLORIDE
     Indication: Klebsiella infection
     Route: 042
  3. PIPERACILLIN SODIUM\TAZOBACTAM SODIUM [Concomitant]
     Active Substance: PIPERACILLIN SODIUM\TAZOBACTAM SODIUM
     Indication: Infection prophylaxis
  4. PIPERACILLIN SODIUM\TAZOBACTAM SODIUM [Concomitant]
     Active Substance: PIPERACILLIN SODIUM\TAZOBACTAM SODIUM
     Indication: Klebsiella infection
  5. FLUCONAZOLE [Concomitant]
     Active Substance: FLUCONAZOLE
     Indication: Peritonitis
  6. TOBRAMYCIN [Concomitant]
     Active Substance: TOBRAMYCIN
     Indication: Klebsiella infection
  7. ERYTHROMYCIN [Concomitant]
     Active Substance: ERYTHROMYCIN
  8. GATIFLOXACIN [Concomitant]
     Active Substance: GATIFLOXACIN
     Indication: Peritonitis
  9. CILASTATIN SODIUM\IMIPENEM [Concomitant]
     Active Substance: CILASTATIN SODIUM\IMIPENEM
     Indication: Peritonitis
  10. CALCIUM CHLORIDE HEXAHYDRATE/POTASSIUM CHLORIDE/SODIUM ACETATE TRIHYDR [Concomitant]
  11. CLONIDINE [Concomitant]
     Active Substance: CLONIDINE
  12. DEXAMETHASONE [Concomitant]
     Active Substance: DEXAMETHASONE
  13. ERYTHROPOIETIN [Concomitant]
     Active Substance: ERYTHROPOIETIN
  14. FERROUS SULFATE [Concomitant]
     Active Substance: FERROUS SULFATE
  15. INSULIN NOS [Concomitant]
     Active Substance: INSULIN NOS
  16. IPRATROPIUM [Concomitant]
     Active Substance: IPRATROPIUM
  17. LORAZEPAM [Concomitant]
     Active Substance: LORAZEPAM
  18. METOCLOPRAMIDE [Concomitant]
     Active Substance: METOCLOPRAMIDE
  19. MORPHINE [Concomitant]
     Active Substance: MORPHINE
  20. PANTOPRAZOLE [Concomitant]
     Active Substance: PANTOPRAZOLE
  21. ALBUTEROL [Concomitant]
     Active Substance: ALBUTEROL

REACTIONS (1)
  - Toxic epidermal necrolysis [Recovering/Resolving]
